FAERS Safety Report 24572250 (Version 6)
Quarter: 2025Q1

REPORT INFORMATION
  Report Type: Spontaneous
  Country: GB (occurrence: GB)
  Receive Date: 20241101
  Receipt Date: 20250324
  Transmission Date: 20250409
  Serious: Yes (Hospitalization, Disabling, Other)
  Sender: PFIZER
  Company Number: GB-PFIZER INC-202400288604

PATIENT
  Age: 48 Year
  Sex: Female
  Weight: 52 kg

DRUGS (12)
  1. OXBRYTA [Suspect]
     Active Substance: VOXELOTOR
     Indication: Sickle cell disease
     Dosage: 500 MG, 1X/DAY
     Route: 048
     Dates: start: 20240715, end: 20240925
  2. OXBRYTA [Suspect]
     Active Substance: VOXELOTOR
     Indication: Haemolytic anaemia
     Dosage: 1000 MG, DAILY (500 MG, 2 TABLETS)
     Dates: start: 20240722
  3. OXBRYTA [Suspect]
     Active Substance: VOXELOTOR
     Dosage: 500 MG, DAILY
     Dates: start: 20240823, end: 20240925
  4. CODEINE [Concomitant]
     Active Substance: CODEINE
     Indication: Sickle cell disease
  5. CYCLIZINE [Concomitant]
     Active Substance: CYCLIZINE
     Indication: Sickle cell disease
  6. FOLIC ACID [Concomitant]
     Active Substance: FOLIC ACID
     Indication: Sickle cell disease
     Dosage: 5 MG, 2X/DAY BY MOUTH
     Route: 048
  7. HYLO FORTE [Concomitant]
     Indication: Dry eye
  8. OMEPRAZOLE [Concomitant]
     Active Substance: OMEPRAZOLE
  9. ACETAMINOPHEN [Concomitant]
     Active Substance: ACETAMINOPHEN
     Indication: Sickle cell disease
  10. PENICILLIN [Concomitant]
     Active Substance: PENICILLIN
     Dosage: 250 G, 2X/DAY
     Route: 048
  11. ALBUTEROL [Concomitant]
     Active Substance: ALBUTEROL
     Indication: Asthma
     Dosage: UNK, DAILY
  12. TRAMADOL [Concomitant]
     Active Substance: TRAMADOL
     Indication: Sickle cell disease

REACTIONS (18)
  - Haemoglobin decreased [Recovered/Resolved]
  - Rheumatoid arthritis [Unknown]
  - Pain in jaw [Not Recovered/Not Resolved]
  - Swelling face [Not Recovered/Not Resolved]
  - Facial pain [Not Recovered/Not Resolved]
  - Arthralgia [Not Recovered/Not Resolved]
  - Musculoskeletal stiffness [Not Recovered/Not Resolved]
  - Feeding disorder [Not Recovered/Not Resolved]
  - Alanine aminotransferase increased [Unknown]
  - Ear pain [Not Recovered/Not Resolved]
  - Haemoglobin decreased [Unknown]
  - Trismus [Not Recovered/Not Resolved]
  - Insomnia [Recovered/Resolved]
  - Abdominal pain [Recovered/Resolved]
  - Nervous system disorder [Not Recovered/Not Resolved]
  - Pain in extremity [Not Recovered/Not Resolved]
  - Weight decreased [Not Recovered/Not Resolved]
  - Crying [Not Recovered/Not Resolved]

NARRATIVE: CASE EVENT DATE: 20240101
